FAERS Safety Report 23652070 (Version 1)
Quarter: 2024Q1

REPORT INFORMATION
  Report Type: Spontaneous
  Country: US (occurrence: US)
  Receive Date: 20240320
  Receipt Date: 20240320
  Transmission Date: 20240410
  Serious: Yes (Other)
  Sender: FDA-Public Use
  Company Number: US-TASMAN PHARMA, INC.-2024TSM00166

PATIENT
  Sex: Female

DRUGS (4)
  1. CLOZAPINE [Suspect]
     Active Substance: CLOZAPINE
     Indication: Major depression
     Dosage: INITIAL; UNKNOWN
  2. CLOZAPINE [Suspect]
     Active Substance: CLOZAPINE
     Dosage: RECHALLENGE; UNKNOWN
  3. QUETIAPINE [Concomitant]
     Active Substance: QUETIAPINE
     Indication: Major depression
     Dosage: CROSS-TAPERED
  4. OLANZAPINE [Concomitant]
     Active Substance: OLANZAPINE
     Indication: Major depression
     Dosage: CROSS-TAPERED

REACTIONS (2)
  - Systemic inflammatory response syndrome [Recovered/Resolved]
  - Gait disturbance [Unknown]
